FAERS Safety Report 7892881-4 (Version None)
Quarter: 2011Q4

REPORT INFORMATION
  Report Type: 
  Country: None (occurrence: None)
  Receive Date: 20111104
  Receipt Date: 20111020
  Transmission Date: 20120403
  Serious: Yes (Hospitalization)
  Sender: FDA-Public Use
  Company Number: IE-SANOFI-AVENTIS-2011SA041016

PATIENT
  Age: 72 Year
  Sex: Female

DRUGS (4)
  1. PERINDOPRIL ERBUMINE [Concomitant]
  2. LEVOTHYROXINE SODIUM [Concomitant]
  3. GLYBURIDE [Suspect]
     Route: 065
  4. DANAZOL [Suspect]
     Indication: IDIOPATHIC THROMBOCYTOPENIC PURPURA
     Route: 065

REACTIONS (11)
  - MEDICATION ERROR [None]
  - BUNDLE BRANCH BLOCK LEFT [None]
  - ASTHENIA [None]
  - DRUG DISPENSING ERROR [None]
  - PRESYNCOPE [None]
  - BLOOD CREATINE PHOSPHOKINASE INCREASED [None]
  - HYPOGLYCAEMIA [None]
  - TROPONIN I INCREASED [None]
  - MYOCARDIAL INFARCTION [None]
  - CHEST PAIN [None]
  - HYPERHIDROSIS [None]
